FAERS Safety Report 8126849-X (Version None)
Quarter: 2012Q1

REPORT INFORMATION
  Report Type: 
  Country: None (occurrence: None)
  Receive Date: 20120210
  Receipt Date: 20120207
  Transmission Date: 20120608
  Serious: No
  Sender: FDA-Public Use
  Company Number: US-PFIZER INC-2012034687

PATIENT
  Sex: Female
  Weight: 80 kg

DRUGS (5)
  1. AZITHROMYCIN [Suspect]
     Indication: PNEUMONIA
     Dosage: UNK
     Dates: start: 20120101
  2. PREDNISONE [Suspect]
     Indication: PNEUMONIA
     Dosage: UNK
     Dates: start: 20120101
  3. ZITHROMAX [Suspect]
     Indication: PNEUMONIA
     Dosage: UNK
     Dates: start: 20120101
  4. CHANTIX [Suspect]
     Indication: SMOKING CESSATION THERAPY
     Dosage: 0.5 MG, DAILY
     Route: 048
     Dates: start: 20120206
  5. KEFLEX [Suspect]
     Indication: PNEUMONIA
     Dosage: UNK
     Dates: start: 20120101

REACTIONS (2)
  - SENSATION OF HEAVINESS [None]
  - FATIGUE [None]
